FAERS Safety Report 9202464 (Version 2)
Quarter: 2013Q2

REPORT INFORMATION
  Report Type: Spontaneous
  Country: US (occurrence: US)
  Receive Date: 20130401
  Receipt Date: 20130422
  Transmission Date: 20140414
  Serious: Yes (Death, Hospitalization)
  Sender: FDA-Public Use
  Company Number: US-LUNDBECK-DKLU1089913

PATIENT
  Age: 1 Year
  Sex: Male
  Weight: 7.6 kg

DRUGS (16)
  1. SABRIL (FOR ORAL SOLUTION) [Suspect]
     Indication: INFANTILE SPASMS
     Route: 048
     Dates: start: 201212
  2. SABRIL (FOR ORAL SOLUTION) [Suspect]
     Indication: CONVULSION
     Route: 048
     Dates: start: 20130204
  3. TOPAMAX [Concomitant]
     Indication: INFANTILE SPASMS
     Route: 048
  4. XOPENEX [Concomitant]
     Indication: DYSPNOEA
  5. XOPENEX [Concomitant]
     Indication: WHEEZING
  6. IBUPROFEN [Concomitant]
     Indication: PAIN
     Route: 048
  7. IBUPROFEN [Concomitant]
     Indication: PYREXIA
  8. ACETAMINOPHEN [Concomitant]
     Indication: PAIN
     Route: 048
  9. ACETAMINOPHEN [Concomitant]
     Indication: PYREXIA
  10. RANITIDINE HCL [Concomitant]
     Indication: PRODUCT USED FOR UNKNOWN INDICATION
     Route: 048
  11. GLYCOPYRROLATE [Concomitant]
     Indication: PRODUCT USED FOR UNKNOWN INDICATION
  12. BUDESONIDE [Concomitant]
     Indication: DYSPNOEA
     Route: 050
  13. MIRALAX [Concomitant]
     Indication: CONSTIPATION
     Route: 048
  14. MIRALAX [Concomitant]
     Dosage: 0.25 PACKAGE
     Route: 048
  15. ERYTHROMYCIN [Concomitant]
     Indication: GASTRIC DISORDER
     Route: 048
  16. PULMICORT [Concomitant]
     Indication: PRODUCT USED FOR UNKNOWN INDICATION
     Route: 050

REACTIONS (3)
  - Death [Fatal]
  - Upper respiratory tract infection [Unknown]
  - Vomiting [Unknown]
